FAERS Safety Report 9373183 (Version 1)
Quarter: 2013Q2

REPORT INFORMATION
  Report Type: Spontaneous
  Country: PL (occurrence: PL)
  Receive Date: 20130627
  Receipt Date: 20130627
  Transmission Date: 20140414
  Serious: Yes (Other)
  Sender: FDA-Public Use
  Company Number: PL-BAYER-2013-074959

PATIENT
  Age: 23 Year
  Sex: Male

DRUGS (2)
  1. BETAFERON [Suspect]
     Indication: RELAPSING-REMITTING MULTIPLE SCLEROSIS
     Route: 058
  2. FINGOLIMOD [Concomitant]

REACTIONS (5)
  - Multiple sclerosis relapse [None]
  - Optic neuritis [None]
  - Pyramidal tract syndrome [None]
  - Expanded disability status scale score increased [None]
  - Drug ineffective [None]
